FAERS Safety Report 6889564-6 (Version None)
Quarter: 2010Q3

REPORT INFORMATION
  Report Type: 
  Country: None (occurrence: None)
  Receive Date: 20100730
  Receipt Date: 20080315
  Transmission Date: 20110219
  Serious: Yes (Other)
  Sender: FDA-Public Use
  Company Number: US-PFIZER INC-2008023961

PATIENT
  Sex: Male
  Weight: 90.7 kg

DRUGS (13)
  1. LIPITOR [Suspect]
     Indication: BLOOD CHOLESTEROL
     Dates: end: 20080101
  2. CHANTIX [Suspect]
     Indication: EX-TOBACCO USER
     Dates: start: 20080301, end: 20080314
  3. PLAVIX [Concomitant]
  4. AMBIEN [Concomitant]
     Dosage: AT NIGHT
  5. ACETYLSALICYLIC ACID SRT [Concomitant]
  6. COZAAR [Concomitant]
  7. TAMSULOSIN HYDROCHLORIDE [Concomitant]
  8. LEXAPRO [Concomitant]
  9. ZOCOR [Concomitant]
  10. COREG [Concomitant]
  11. BUPROPION [Concomitant]
  12. EFFEXOR [Concomitant]
  13. CRESTOR [Concomitant]

REACTIONS (1)
  - AMNESIA [None]
